FAERS Safety Report 4349078-4 (Version None)
Quarter: 2004Q2

REPORT INFORMATION
  Report Type: 
  Country: None (occurrence: None)
  Receive Date: 20040423
  Receipt Date: 20040414
  Transmission Date: 20050107
  Serious: Yes (Hospitalization)
  Sender: FDA-Public Use
  Company Number: 2004-04-0651

PATIENT
  Age: 75 Year
  Sex: Male

DRUGS (8)
  1. FLUTAMIDE [Suspect]
     Indication: PROSTATE CANCER
     Dosage: 375 MG QD ORAL
     Route: 048
     Dates: start: 20040304, end: 20040322
  2. LEUPROLIDE ACETATE [Suspect]
     Indication: PROSTATE CANCER
     Dosage: 3.75 MG SUBCUTANEOUS
     Route: 058
     Dates: start: 20040304, end: 20040304
  3. CIMETIDINE [Concomitant]
  4. AMLODIPINE BESYLATE [Concomitant]
  5. ATORVASTATIN CALCIUM [Concomitant]
  6. VOGLIBOSE [Concomitant]
  7. CIRCANETTEN [Concomitant]
  8. GLIMEPIRIDE [Concomitant]

REACTIONS (3)
  - LOBAR PNEUMONIA [None]
  - OEDEMA PERIPHERAL [None]
  - THROMBOSIS [None]
